FAERS Safety Report 10883957 (Version 1)
Quarter: 2015Q1

REPORT INFORMATION
  Report Type: Spontaneous
  Country: US (occurrence: US)
  Receive Date: 20150304
  Receipt Date: 20150304
  Transmission Date: 20150721
  Serious: No
  Sender: FDA-Public Use
  Company Number: US-009507513-1502USA009597

PATIENT
  Age: 29 Year
  Sex: Female
  Weight: 55.33 kg

DRUGS (2)
  1. NUVARING [Suspect]
     Active Substance: ETHINYL ESTRADIOL\ETONOGESTREL
     Indication: HYPOMENORRHOEA
  2. NUVARING [Suspect]
     Active Substance: ETHINYL ESTRADIOL\ETONOGESTREL
     Indication: CONTRACEPTION
     Dosage: 1 RING, 3 WEEKS IN AND 1 WEEK OUT
     Route: 067
     Dates: start: 201304, end: 20150219

REACTIONS (2)
  - Product contamination [Unknown]
  - Discomfort [Unknown]

NARRATIVE: CASE EVENT DATE: 20150218
